FAERS Safety Report 12896448 (Version 1)
Quarter: 2016Q4

REPORT INFORMATION
  Report Type: Spontaneous
  Country: US (occurrence: US)
  Receive Date: 20161031
  Receipt Date: 20161031
  Transmission Date: 20170207
  Serious: No
  Sender: FDA-Public Use
  Company Number: US-JAZZ-2016-US-016365

PATIENT
  Age: 38 Year
  Sex: Female

DRUGS (27)
  1. LAMICTAL [Concomitant]
     Active Substance: LAMOTRIGINE
  2. ORNITHINE HCL [Concomitant]
  3. MAGNESIUM OXIDE. [Concomitant]
     Active Substance: MAGNESIUM OXIDE
  4. VITAMIN B COMPLEX [Concomitant]
     Active Substance: CYANOCOBALAMIN\DEXPANTHENOL\NIACINAMIDE\PYRIDOXINE HYDROCHLORIDE\RIBOFLAVIN 5^-PHOSPHATE SODIUM\THIAMINE HYDROCHLORIDE\VITAMIN B COMPLEX
  5. LUVOX [Concomitant]
     Active Substance: FLUVOXAMINE MALEATE
  6. ADDERALL [Concomitant]
     Active Substance: AMPHETAMINE ASPARTATE\AMPHETAMINE SULFATE\DEXTROAMPHETAMINE SACCHARATE\DEXTROAMPHETAMINE SULFATE
  7. CLARITIN [Concomitant]
     Active Substance: LORATADINE
  8. XYREM [Suspect]
     Active Substance: SODIUM OXYBATE
     Indication: NARCOLEPSY
     Dosage: 2.25 G, BID
     Route: 048
     Dates: start: 201306, end: 201307
  9. CALTRATE [Concomitant]
     Active Substance: CALCIUM CARBONATE
  10. OMEGA 3 [Concomitant]
     Active Substance: OMEGA-3 FATTY ACIDS
  11. ORTHO-NOVUM [Concomitant]
     Active Substance: ETHINYL ESTRADIOL\NORETHINDRONE
  12. DULOXETINE HCL [Concomitant]
     Active Substance: DULOXETINE HYDROCHLORIDE
  13. MELOXICAM. [Concomitant]
     Active Substance: MELOXICAM
  14. MODAFINIL. [Concomitant]
     Active Substance: MODAFINIL
  15. MULTIVITAMINS [Concomitant]
     Active Substance: VITAMINS
  16. VICODIN [Concomitant]
     Active Substance: ACETAMINOPHEN\HYDROCODONE BITARTRATE
  17. XYREM [Suspect]
     Active Substance: SODIUM OXYBATE
     Indication: CATAPLEXY
     Dosage: DOSE ADJUSTMENTS
     Route: 048
     Dates: start: 201307, end: 201308
  18. XYREM [Suspect]
     Active Substance: SODIUM OXYBATE
     Dosage: 4.5 G, BID
     Route: 048
     Dates: start: 201308
  19. GUARANA [Concomitant]
  20. PROBIOTIC [Concomitant]
     Active Substance: PROBIOTICS NOS
  21. SELENIUM SULFIDE. [Concomitant]
     Active Substance: SELENIUM SULFIDE
  22. SIMETHICONE (DIMETHICONE) [Concomitant]
     Active Substance: DIMETHICONE
  23. DULCOLAX NOS [Concomitant]
     Active Substance: BISACODYL OR DOCUSATE SODIUM
  24. VALACYCLOVIR HCL [Concomitant]
     Active Substance: VALACYCLOVIR HYDROCHLORIDE
  25. ZOVIA [Concomitant]
     Active Substance: ETHINYL ESTRADIOL\ETHYNODIOL DIACETATE
  26. L-CITRULLINE [Concomitant]
     Active Substance: CITRULLINE
  27. XANAX [Concomitant]
     Active Substance: ALPRAZOLAM

REACTIONS (3)
  - Tremor [Unknown]
  - Herpes zoster [Unknown]
  - Fibromyalgia [Unknown]

NARRATIVE: CASE EVENT DATE: 201607
